FAERS Safety Report 7814827-7 (Version None)
Quarter: 2011Q4

REPORT INFORMATION
  Report Type: 
  Country: None (occurrence: None)
  Receive Date: 20111013
  Receipt Date: 20111013
  Transmission Date: 20120403
  Serious: No
  Sender: FDA-Public Use
  Company Number: None

PATIENT
  Sex: Female
  Weight: 68.0396 kg

DRUGS (2)
  1. LATANOPROST [Suspect]
     Indication: GLAUCOMA
     Dosage: 1 DROP / EYE DAILY
     Dates: start: 20110630, end: 20110720
  2. TRAVATAN [Suspect]
     Indication: GLAUCOMA
     Dosage: 1 DROP / EYE DAYLY
     Dates: start: 20110722, end: 20110730

REACTIONS (1)
  - EYE IRRITATION [None]
